FAERS Safety Report 9146636 (Version 2)
Quarter: 2013Q1

REPORT INFORMATION
  Report Type: Spontaneous
  Country: ES (occurrence: ES)
  Receive Date: 20130307
  Receipt Date: 20130322
  Transmission Date: 20140127
  Serious: Yes (Other)
  Sender: FDA-Public Use
  Company Number: ES-JNJFOC-20130215931

PATIENT
  Age: 55 Year
  Sex: Male

DRUGS (1)
  1. STELARA [Suspect]
     Indication: PSORIASIS
     Dosage: APPROXIMATELY A TOTAL OF 10 INJECTIONS RECEIVED
     Route: 058
     Dates: start: 20091015, end: 20121119

REACTIONS (2)
  - Colon cancer [Not Recovered/Not Resolved]
  - Anaemia [Not Recovered/Not Resolved]
